FAERS Safety Report 21670187 (Version 1)
Quarter: 2022Q4

REPORT INFORMATION
  Report Type: Spontaneous
  Country: GB (occurrence: GB)
  Receive Date: 20221201
  Receipt Date: 20221201
  Transmission Date: 20230113
  Serious: Yes (Hospitalization, Other)
  Sender: FDA-Public Use
  Company Number: GB-MYLANLABS-2022M1023166

PATIENT
  Sex: Male

DRUGS (3)
  1. DIAZEPAM [Suspect]
     Active Substance: DIAZEPAM
     Indication: Product used for unknown indication
     Dosage: UNK
     Route: 065
  2. CLOZARIL [Suspect]
     Active Substance: CLOZAPINE
     Indication: Schizophrenia
     Dosage: UNK THERAPY END DATE : NOT ASKED
     Route: 048
     Dates: start: 20200818
  3. CLOZARIL [Suspect]
     Active Substance: CLOZAPINE
     Dosage: UNK, THERAPY END DATE : NOT ASKED
     Route: 048
     Dates: start: 20221108

REACTIONS (5)
  - Schizophrenia [Unknown]
  - Drug abuse [Unknown]
  - Disorientation [Unknown]
  - Confusional state [Unknown]
  - Product dose omission issue [Unknown]
